FAERS Safety Report 9276924 (Version 1)
Quarter: 2013Q2

REPORT INFORMATION
  Report Type: Spontaneous
  Country: US (occurrence: US)
  Receive Date: 20130507
  Receipt Date: 20130507
  Transmission Date: 20140414
  Serious: Yes (Other)
  Sender: FDA-Public Use
  Company Number: US-FRI-1000044907

PATIENT
  Age: 36 Year
  Sex: Female
  Weight: 60.46 kg

DRUGS (1)
  1. VIIBRYD [Suspect]
     Indication: DEPRESSION
     Dates: start: 20120321, end: 20130110

REACTIONS (3)
  - Syncope [Recovered/Resolved]
  - Extremity contracture [Recovered/Resolved]
  - Blood pressure increased [Recovered/Resolved]
